FAERS Safety Report 19469759 (Version 1)
Quarter: 2021Q2

REPORT INFORMATION
  Report Type: Spontaneous
  Country: GB (occurrence: GB)
  Receive Date: 20210629
  Receipt Date: 20210629
  Transmission Date: 20210717
  Serious: Yes (Other)
  Sender: FDA-Public Use
  Company Number: GB-CELLTRION INC.-2021GB008605

PATIENT

DRUGS (7)
  1. PREDNISOLONE. [Suspect]
     Active Substance: PREDNISOLONE
     Indication: FIBROSIS
     Dosage: 60 MG, QD (HIGH?DOSE)
     Route: 048
  2. PREDNISOLONE. [Suspect]
     Active Substance: PREDNISOLONE
     Dosage: 35 MG/DAY
     Route: 048
  3. RITUXIMAB (UNKNOWN) [Suspect]
     Active Substance: RITUXIMAB
     Indication: FIBROSIS
     Dosage: 1 GRAM
  4. PREDNISOLONE. [Suspect]
     Active Substance: PREDNISOLONE
     Dosage: 5 MG TAPERED
     Route: 048
  5. RITUXIMAB (UNKNOWN) [Suspect]
     Active Substance: RITUXIMAB
     Dosage: 1 GRAM AFTER 6 MONTHS FROM INITIAL DOSE
  6. METHOTREXATE. [Suspect]
     Active Substance: METHOTREXATE
     Indication: FIBROSIS
     Dosage: 25 MG, 1/WEEK
  7. RITUXIMAB (UNKNOWN) [Suspect]
     Active Substance: RITUXIMAB
     Dosage: FREQUENCY WAS INCREASED TO 4?MONTHLY

REACTIONS (5)
  - Drug effective for unapproved indication [Unknown]
  - Maternal exposure before pregnancy [Unknown]
  - Fibrosis [Recovered/Resolved]
  - Off label use [Unknown]
  - Condition aggravated [Recovered/Resolved]
